FAERS Safety Report 5045230-3 (Version None)
Quarter: 2006Q3

REPORT INFORMATION
  Report Type: 
  Country: None (occurrence: None)
  Receive Date: 20060707
  Receipt Date: 20060503
  Transmission Date: 20061208
  Serious: Yes (Disabling, Other)
  Sender: FDA-Public Use
  Company Number: DE-GLAXOSMITHKLINE-D0049586A

PATIENT
  Age: 46 Year
  Sex: Male
  Weight: 100 kg

DRUGS (2)
  1. AVANDIA [Suspect]
     Indication: DIABETES MELLITUS NON-INSULIN-DEPENDENT
     Dosage: 8MG PER DAY
     Route: 048
     Dates: start: 20050101, end: 20060501
  2. ALCOHOL [Suspect]
     Route: 048
     Dates: start: 20060101, end: 20060101

REACTIONS (6)
  - ALCOHOL USE [None]
  - ASTHENIA [None]
  - BLOOD CREATINE PHOSPHOKINASE INCREASED [None]
  - DRUG INTERACTION [None]
  - MYALGIA [None]
  - NAUSEA [None]
